FAERS Safety Report 10974915 (Version 1)
Quarter: 2015Q2

REPORT INFORMATION
  Report Type: Spontaneous
  Country: US (occurrence: US)
  Receive Date: 20150401
  Receipt Date: 20150401
  Transmission Date: 20150821
  Serious: Yes (Death, Other)
  Sender: FDA-Public Use
  Company Number: US-ASTRAZENECA-2014SE60038

PATIENT
  Age: 28403 Day
  Sex: Male
  Weight: 87.1 kg

DRUGS (45)
  1. FAMOTIDINE. [Concomitant]
     Active Substance: FAMOTIDINE
     Dosage: 2 MG/ML
  2. TIGAN [Concomitant]
     Active Substance: TRIMETHOBENZAMIDE HYDROCHLORIDE
  3. NIFEDIPINE. [Concomitant]
     Active Substance: NIFEDIPINE
     Dates: start: 20080603
  4. DOCUSATE SODIUM. [Concomitant]
     Active Substance: DOCUSATE SODIUM
     Dates: start: 20131205
  5. CECLOR [Concomitant]
     Active Substance: CEFACLOR
     Route: 048
  6. ATENOLOL. [Concomitant]
     Active Substance: ATENOLOL
     Dates: start: 20050801
  7. VICTOZA [Suspect]
     Active Substance: LIRAGLUTIDE
     Dosage: UNK
     Route: 065
     Dates: start: 20130115, end: 20130206
  8. COZAAR [Concomitant]
     Active Substance: LOSARTAN POTASSIUM
     Dates: start: 20061024
  9. CLINDAMYCIN [Concomitant]
     Active Substance: CLINDAMYCIN\CLINDAMYCIN PHOSPHATE
     Dates: start: 20060417
  10. VERSED [Concomitant]
     Active Substance: MIDAZOLAM HYDROCHLORIDE
     Dosage: 2G/ ML
     Dates: start: 20131204
  11. METFORMIN [Concomitant]
     Active Substance: METFORMIN HYDROCHLORIDE
     Dates: start: 20080903
  12. METOPROLOL [Concomitant]
     Active Substance: METOPROLOL
     Route: 048
     Dates: start: 20131118
  13. ASPIRIN. [Concomitant]
     Active Substance: ASPIRIN
     Route: 048
     Dates: start: 20131118
  14. FLOMAX [Concomitant]
     Active Substance: TAMSULOSIN HYDROCHLORIDE
     Dates: start: 20061217
  15. TRICOR [Concomitant]
     Active Substance: FENOFIBRATE
     Dates: start: 20060217
  16. OXYCODONE-ACETAMINOPHEN [Concomitant]
     Active Substance: ACETAMINOPHEN\OXYCODONE HYDROCHLORIDE
     Dosage: 3-325 MG, ONE-TWO TAB EVERY FOUR HURS AS NEEDED
     Dates: start: 20131208
  17. ZOFRAN [Concomitant]
     Active Substance: ONDANSETRON HYDROCHLORIDE
     Route: 048
  18. NEXIUM [Concomitant]
     Active Substance: ESOMEPRAZOLE MAGNESIUM
     Route: 048
     Dates: start: 20050729
  19. FISH OIL [Concomitant]
     Active Substance: FISH OIL
     Dosage: DAILY
     Dates: start: 20111216
  20. SPIRONOLACTONE. [Concomitant]
     Active Substance: SPIRONOLACTONE
     Route: 048
     Dates: start: 20050708
  21. ENOXAPARIN [Concomitant]
     Active Substance: ENOXAPARIN
     Dosage: 40MG/0.4 ML
     Dates: start: 20131208
  22. PROTONIX [Concomitant]
     Active Substance: PANTOPRAZOLE SODIUM
     Dates: start: 20071215
  23. FINASTERIDE. [Concomitant]
     Active Substance: FINASTERIDE
     Dates: start: 20071215
  24. NALOXONE [Concomitant]
     Active Substance: NALOXONE
     Dosage: 0.4MG/ ML BID
     Dates: start: 20131204
  25. AVANDIA [Concomitant]
     Active Substance: ROSIGLITAZONE MALEATE
     Dates: start: 20050913
  26. KLOR-CON [Concomitant]
     Active Substance: POTASSIUM CHLORIDE
     Dosage: 10 MEO BID
  27. OMEPRAZOLE. [Concomitant]
     Active Substance: OMEPRAZOLE
     Route: 048
     Dates: start: 20131118
  28. LOVENOX [Concomitant]
     Active Substance: ENOXAPARIN SODIUM
     Dosage: 40MG/0.4 ML DAILY
     Route: 058
  29. TOPROL XL [Concomitant]
     Active Substance: METOPROLOL SUCCINATE
     Route: 048
     Dates: start: 20131206
  30. ACTOS [Concomitant]
     Active Substance: PIOGLITAZONE HYDROCHLORIDE
     Dates: start: 20101130
  31. BYETTA [Suspect]
     Active Substance: EXENATIDE
     Dosage: UNK
     Route: 065
     Dates: start: 20080604, end: 20091114
  32. BYETTA [Suspect]
     Active Substance: EXENATIDE
     Route: 065
     Dates: start: 20080613
  33. FUROSEMIDE. [Concomitant]
     Active Substance: FUROSEMIDE
     Route: 048
     Dates: start: 20050906
  34. NITROSTAT [Concomitant]
     Active Substance: NITROGLYCERIN
     Dates: start: 20131118
  35. RESTORIL [Concomitant]
     Active Substance: TEMAZEPAM
     Dates: start: 20071215
  36. HUMALOG [Concomitant]
     Active Substance: INSULIN LISPRO
     Dosage: EVERY SIX HOURS
     Dates: start: 20050725
  37. MORPHINE SULFATE. [Concomitant]
     Active Substance: MORPHINE SULFATE
     Dates: start: 20131206
  38. JANUVIA [Suspect]
     Active Substance: SITAGLIPTIN PHOSPHATE
     Route: 065
     Dates: start: 20101217, end: 20121126
  39. DOXAZOSIN MESILATE [Concomitant]
     Active Substance: DOXAZOSIN MESYLATE
     Route: 048
  40. NOVOLOG [Concomitant]
     Active Substance: INSULIN ASPART
  41. MULTIPLE VITAMINS [Concomitant]
     Active Substance: VITAMINS
     Dosage: DAILY
     Route: 048
     Dates: start: 20131118
  42. VITAMIN D3 [Concomitant]
     Active Substance: CHOLECALCIFEROL
     Dosage: 2000 UNITS DAILY
     Route: 048
     Dates: start: 20131118
  43. LEVAQUIN [Concomitant]
     Active Substance: LEVOFLOXACIN
     Dates: start: 20061217
  44. SIMETHICONE [Concomitant]
     Active Substance: DIMETHICONE\SILICON DIOXIDE\SIMETHICONE
     Route: 048
  45. ZOLPIDEM [Concomitant]
     Active Substance: ZOLPIDEM\ZOLPIDEM TARTRATE
     Dates: start: 20071017

REACTIONS (1)
  - Adenocarcinoma pancreas [Fatal]

NARRATIVE: CASE EVENT DATE: 20131120
